FAERS Safety Report 24023564 (Version 1)
Quarter: 2024Q2

REPORT INFORMATION
  Report Type: Spontaneous
  Country: IT (occurrence: IT)
  Receive Date: 20240627
  Receipt Date: 20240627
  Transmission Date: 20240716
  Serious: No
  Sender: FDA-Public Use
  Company Number: None

PATIENT
  Age: 36 Year
  Sex: Female

DRUGS (1)
  1. VABYSMO [Suspect]
     Active Substance: FARICIMAB\FARICIMAB-SVOA
     Indication: Diabetic retinal oedema
     Dosage: 6MG 0.05MG WITH 1 INTRAVITREAL INJECTION EVERY 4 WEEKS
     Route: 050
     Dates: start: 20240408, end: 20240408

REACTIONS (2)
  - Anterior chamber cell [Recovered/Resolved]
  - Vitreal cells [Recovering/Resolving]

NARRATIVE: CASE EVENT DATE: 20240415
